FAERS Safety Report 18880673 (Version 1)
Quarter: 2021Q1

REPORT INFORMATION
  Report Type: Spontaneous
  Country: GB (occurrence: GB)
  Receive Date: 20210212
  Receipt Date: 20210212
  Transmission Date: 20210420
  Serious: Yes (Hospitalization, Other)
  Sender: FDA-Public Use
  Company Number: GB-SUN PHARMACEUTICAL INDUSTRIES LTD-2021RR-280346

PATIENT
  Age: 36 Year
  Sex: Female

DRUGS (2)
  1. LETROZOLE. [Suspect]
     Active Substance: LETROZOLE
     Indication: LEIOMYOMA
     Dosage: UNK
     Route: 065
     Dates: start: 201008, end: 2012
  2. GOSERELIN [Suspect]
     Active Substance: GOSERELIN
     Indication: LEIOMYOMA
     Dosage: UNK
     Route: 065
     Dates: start: 201008, end: 2012

REACTIONS (3)
  - Insomnia [Unknown]
  - Libido decreased [Unknown]
  - Therapeutic product effect incomplete [Unknown]
